FAERS Safety Report 7699989 (Version 2)
Quarter: 2013Q2

REPORT INFORMATION
  Report Type: Spontaneous
  Country: BR (occurrence: BR)
  Receive Date: 20101208
  Receipt Date: 20130404
  Transmission Date: 20140414
  Serious: No
  Sender: FDA-Public Use
  Company Number: BR-PFIZER INC-2010159041

PATIENT
  Age: 69 Year
  Sex: Female
  Weight: 52 kg

DRUGS (7)
  1. MINIDIAB [Suspect]
     Indication: BLOOD GLUCOSE INCREASED
     Dosage: 2.5 MG, 1X/DAY
     Route: 048
     Dates: start: 2008
  2. ALPRAZOLAM [Concomitant]
     Indication: DEPRESSION
     Dosage: 2 MG
  3. ALPRAZOLAM [Concomitant]
     Indication: ANXIETY
  4. ALPRAZOLAM [Concomitant]
     Indication: NERVOUS SYSTEM DISORDER
  5. RIVOTRIL [Concomitant]
     Indication: DEPRESSION
     Dosage: UNK
  6. RIVOTRIL [Concomitant]
     Indication: ANXIETY
  7. RIVOTRIL [Concomitant]
     Indication: NERVOUS SYSTEM DISORDER

REACTIONS (5)
  - Blood glucose increased [Unknown]
  - Tremor [Unknown]
  - Dizziness [Unknown]
  - Weight decreased [Unknown]
  - Feeling abnormal [Unknown]
